FAERS Safety Report 5085036-2 (Version None)
Quarter: 2006Q3

REPORT INFORMATION
  Report Type: 
  Country: None (occurrence: None)
  Receive Date: 20060815
  Receipt Date: 20060727
  Transmission Date: 20061208
  Serious: Yes (Hospitalization)
  Sender: FDA-Public Use
  Company Number: US200607005234

PATIENT
  Age: 70 Year
  Sex: Female

DRUGS (2)
  1. FORTEO [Suspect]
     Indication: OSTEOPOROSIS
     Dates: start: 20041201, end: 20060711
  2. FORTEO [Concomitant]

REACTIONS (3)
  - BONE DENSITY DECREASED [None]
  - CONDITION AGGRAVATED [None]
  - HYSTERECTOMY [None]
